FAERS Safety Report 12219860 (Version 1)
Quarter: 2016Q1

REPORT INFORMATION
  Report Type: Spontaneous
  Country: BR (occurrence: BR)
  Receive Date: 20160330
  Receipt Date: 20160330
  Transmission Date: 20160526
  Serious: Yes (Hospitalization, Other)
  Sender: FDA-Public Use
  Company Number: BR-PFIZER INC-2016174044

PATIENT
  Age: 78 Year
  Sex: Female
  Weight: 39 kg

DRUGS (1)
  1. LYRICA [Suspect]
     Active Substance: PREGABALIN
     Indication: SPINAL DISORDER
     Dosage: 75 MG, 1 CAPSULE EVERY 12 HOURS
     Dates: start: 201509

REACTIONS (2)
  - Spinal fracture [Unknown]
  - Bedridden [Not Recovered/Not Resolved]
